FAERS Safety Report 4723508-8 (Version None)
Quarter: 2005Q3

REPORT INFORMATION
  Report Type: 
  Country: None (occurrence: None)
  Receive Date: 20050725
  Receipt Date: 20050426
  Transmission Date: 20060218
  Serious: No
  Sender: FDA-Public Use
  Company Number: US-GLAXOSMITHKLINE-A0555838A

PATIENT
  Sex: Female

DRUGS (1)
  1. DYAZIDE [Suspect]
     Indication: HYPERTENSION
     Route: 048

REACTIONS (1)
  - DYSGEUSIA [None]
